FAERS Safety Report 26009517 (Version 2)
Quarter: 2025Q4

REPORT INFORMATION
  Report Type: Report from Study
  Country: US (occurrence: US)
  Receive Date: 20251107
  Receipt Date: 20251121
  Transmission Date: 20260117
  Serious: Yes (Other)
  Sender: ABBVIE
  Company Number: US-ABBVIE-6533238

PATIENT
  Age: 59 Year
  Sex: Female
  Weight: 58.966 kg

DRUGS (8)
  1. SKYRIZI [Suspect]
     Active Substance: RISANKIZUMAB-RZAA
     Indication: Crohn^s disease
     Route: 058
     Dates: start: 202407, end: 202508
  2. SKYRIZI [Suspect]
     Active Substance: RISANKIZUMAB-RZAA
     Indication: Psoriatic arthropathy
     Route: 058
     Dates: start: 20251026
  3. VALIUM [Concomitant]
     Active Substance: DIAZEPAM
     Indication: Product used for unknown indication
     Dosage: AS NEEDED
  4. Anastrozole ga [Concomitant]
     Indication: Breast cancer
  5. OZEMPIC [Concomitant]
     Active Substance: SEMAGLUTIDE
     Indication: Hiatus hernia
  6. LEXAPRO [Concomitant]
     Active Substance: ESCITALOPRAM OXALATE
     Indication: Depression
  7. ATOMOXETINE [Concomitant]
     Active Substance: ATOMOXETINE
     Indication: Attention deficit hyperactivity disorder
  8. TRAZODONE [Concomitant]
     Active Substance: TRAZODONE HYDROCHLORIDE
     Indication: Sleep disorder
     Dosage: EVERY NIGHT

REACTIONS (3)
  - Intestinal resection [Unknown]
  - Incisional hernia [Recovering/Resolving]
  - Incisional hernia [Recovering/Resolving]

NARRATIVE: CASE EVENT DATE: 20240101
